FAERS Safety Report 12362350 (Version 1)
Quarter: 2016Q2

REPORT INFORMATION
  Report Type: Spontaneous
  Country: US (occurrence: US)
  Receive Date: 20160512
  Receipt Date: 20160512
  Transmission Date: 20160815
  Serious: No
  Sender: FDA-Public Use
  Company Number: US-MYLANLABS-2015M1021738

PATIENT
  Sex: Female

DRUGS (1)
  1. TOLBUTAMIDE TABLETS USP [Suspect]
     Active Substance: TOLBUTAMIDE
     Indication: BLOOD GLUCOSE INCREASED
     Dosage: 750 MG, QD
     Route: 048

REACTIONS (1)
  - Drug ineffective [Not Recovered/Not Resolved]

NARRATIVE: CASE EVENT DATE: 201505
